FAERS Safety Report 24207235 (Version 3)
Quarter: 2025Q1

REPORT INFORMATION
  Report Type: Spontaneous
  Country: US (occurrence: US)
  Receive Date: 20240813
  Receipt Date: 20250120
  Transmission Date: 20250409
  Serious: No
  Sender: SANOFI AVENTIS
  Company Number: US-SA-SAC20240809000729

PATIENT
  Sex: Female
  Weight: 72.1 kg

DRUGS (11)
  1. DUPIXENT [Suspect]
     Active Substance: DUPILUMAB
     Indication: Asthma
     Dosage: 300 MG, QOW
     Route: 058
  2. SYMBICORT [Concomitant]
     Active Substance: BUDESONIDE\FORMOTEROL FUMARATE DIHYDRATE
  3. ALBUTEROL SULFATE [Concomitant]
     Active Substance: ALBUTEROL SULFATE
  4. HYDROCHLOROTHIAZIDE [Concomitant]
     Active Substance: HYDROCHLOROTHIAZIDE
  5. AZITHROMYCIN [Concomitant]
     Active Substance: AZITHROMYCIN
  6. PROAIR DIGIHALER [Concomitant]
     Active Substance: ALBUTEROL SULFATE
  7. AZELASTINE HYDROCHLORIDE [Concomitant]
     Active Substance: AZELASTINE HYDROCHLORIDE
  8. VERAPAMIL [Concomitant]
     Active Substance: VERAPAMIL HYDROCHLORIDE
  9. CLINDAMYCIN HYDROCHLORIDE [Concomitant]
     Active Substance: CLINDAMYCIN HYDROCHLORIDE
  10. SYNTHROID [Concomitant]
     Active Substance: LEVOTHYROXINE SODIUM
  11. PREDNISONE [Concomitant]
     Active Substance: PREDNISONE

REACTIONS (2)
  - Cough [Unknown]
  - Throat tightness [Unknown]
